FAERS Safety Report 25345105 (Version 1)
Quarter: 2025Q2

REPORT INFORMATION
  Report Type: Spontaneous
  Country: US (occurrence: US)
  Receive Date: 20250522
  Receipt Date: 20250522
  Transmission Date: 20250716
  Serious: No
  Sender: LUPIN
  Company Number: US-LUPIN PHARMACEUTICALS INC.-2025-04070

PATIENT
  Age: 70 Year
  Weight: 72.562 kg

DRUGS (4)
  1. ALBUTEROL SULFATE [Suspect]
     Active Substance: ALBUTEROL SULFATE
     Indication: Dyspnoea
  2. ALBUTEROL SULFATE [Suspect]
     Active Substance: ALBUTEROL SULFATE
     Indication: Lung neoplasm malignant
  3. Pladex [Concomitant]
     Indication: Product used for unknown indication
     Route: 065
  4. HYDROCHLOROTHIAZIDE [Concomitant]
     Active Substance: HYDROCHLOROTHIAZIDE
     Indication: Product used for unknown indication
     Route: 065

REACTIONS (7)
  - Wrong technique in product usage process [Unknown]
  - Incorrect dose administered by device [Unknown]
  - Product use in unapproved indication [Unknown]
  - Device leakage [Unknown]
  - Device issue [Unknown]
  - Device physical property issue [Unknown]
  - No adverse event [Unknown]
